FAERS Safety Report 4916801-7 (Version None)
Quarter: 2006Q1

REPORT INFORMATION
  Report Type: 
  Country: None (occurrence: None)
  Receive Date: 20060220
  Receipt Date: 20060207
  Transmission Date: 20060701
  Serious: Yes (Other)
  Sender: FDA-Public Use
  Company Number: CA-ROCHE-435678

PATIENT
  Age: 15 Year
  Sex: Male

DRUGS (1)
  1. ACCUTANE [Suspect]
     Indication: DRUG USE FOR UNKNOWN INDICATION
     Route: 065

REACTIONS (7)
  - AFFECT LABILITY [None]
  - ANOREXIA [None]
  - APATHY [None]
  - DEPRESSION [None]
  - INSOMNIA [None]
  - PERSONALITY CHANGE [None]
  - SUICIDE ATTEMPT [None]
